FAERS Safety Report 8368088-3 (Version None)
Quarter: 2012Q2

REPORT INFORMATION
  Report Type: 
  Country: None (occurrence: None)
  Receive Date: 20120517
  Receipt Date: 20120509
  Transmission Date: 20120825
  Serious: Yes (Hospitalization, Other)
  Sender: FDA-Public Use
  Company Number: GB-PFIZER INC-2012114423

PATIENT
  Age: 32 Year
  Sex: Female

DRUGS (2)
  1. INFLIXIMAB [Suspect]
     Dosage: 5MG/KG, SINGLE INFUSION
  2. SULFASALAZINE [Suspect]
     Indication: RHEUMATOID ARTHRITIS
     Dosage: UNK

REACTIONS (3)
  - TOXIC EPIDERMAL NECROLYSIS [None]
  - LICHEN PLANUS [None]
  - ACUTE RESPIRATORY DISTRESS SYNDROME [None]
